FAERS Safety Report 7004822-2 (Version None)
Quarter: 2010Q3

REPORT INFORMATION
  Report Type: 
  Country: None (occurrence: None)
  Receive Date: 20100917
  Receipt Date: 20100901
  Transmission Date: 20110219
  Serious: Yes (Hospitalization, Other)
  Sender: FDA-Public Use
  Company Number: 7016356

PATIENT
  Age: 33 Year
  Sex: Female

DRUGS (2)
  1. LEVOTHYROXINE SODIUM [Suspect]
     Indication: THYROID DYSFUNCTION IN PREGNANCY
     Dosage: (25 MCG,1 IN 1 D),  (50 MCG, 1 IN 1 D)
     Dates: start: 20100506, end: 20100523
  2. LEVOTHYROXINE SODIUM [Suspect]
     Indication: THYROID DYSFUNCTION IN PREGNANCY
     Dosage: (25 MCG,1 IN 1 D),  (50 MCG, 1 IN 1 D)
     Dates: start: 20100524, end: 20100608

REACTIONS (3)
  - DISCOMFORT [None]
  - NERVOUSNESS [None]
  - PALPITATIONS [None]
